FAERS Safety Report 7271992-0 (Version None)
Quarter: 2011Q1

REPORT INFORMATION
  Report Type: 
  Country: None (occurrence: None)
  Receive Date: 20110203
  Receipt Date: 20110131
  Transmission Date: 20110831
  Serious: Yes (Death)
  Sender: FDA-Public Use
  Company Number: US-JNJFOC-20101002261

PATIENT
  Age: 35 Year
  Sex: Male

DRUGS (2)
  1. XANAX [Concomitant]
     Route: 048
  2. NUCYNTA [Suspect]
     Indication: BACK PAIN
     Dosage: TWICE DAILY
     Route: 048

REACTIONS (2)
  - ADVERSE EVENT [None]
  - DEATH [None]
